FAERS Safety Report 10351808 (Version 1)
Quarter: 2014Q3

REPORT INFORMATION
  Report Type: Spontaneous
  Country: US (occurrence: US)
  Receive Date: 20140730
  Receipt Date: 20140730
  Transmission Date: 20150326
  Serious: No
  Sender: FDA-Public Use
  Company Number: US-ABBVIE-13P-163-1152370-00

PATIENT
  Age: 51 Year
  Sex: Female

DRUGS (5)
  1. SYNTHROID [Suspect]
     Active Substance: LEVOTHYROXINE SODIUM
     Indication: HYPOTHYROIDISM
     Route: 048
     Dates: start: 20130822
  2. DIVIGEL [Suspect]
     Active Substance: ESTRADIOL
     Indication: HOT FLUSH
  3. SYNTHROID [Suspect]
     Active Substance: LEVOTHYROXINE SODIUM
     Indication: HYPOTHYROIDISM
  4. DIVIGEL [Suspect]
     Active Substance: ESTRADIOL
     Indication: HOT FLUSH
     Route: 061
     Dates: start: 20130822
  5. CRESTOR [Concomitant]
     Active Substance: ROSUVASTATIN CALCIUM

REACTIONS (1)
  - Tinnitus [Unknown]

NARRATIVE: CASE EVENT DATE: 20130824
